FAERS Safety Report 4661961-9 (Version None)
Quarter: 2005Q2

REPORT INFORMATION
  Report Type: 
  Country: None (occurrence: None)
  Receive Date: 20050512
  Receipt Date: 20050128
  Transmission Date: 20051028
  Serious: Yes (Other)
  Sender: FDA-Public Use
  Company Number: 2005022366

PATIENT
  Age: 36 Year
  Sex: Female
  Weight: 72.5755 kg

DRUGS (3)
  1. BENADRYL [Suspect]
     Indication: INFLUENZA
     Dosage: 2 ULTRATABS 3 TIMES, ORAL
     Route: 048
     Dates: start: 20050127, end: 20050127
  2. BAYER PM (ACETYLSALICYLIC ACID, DIPHENHDRAMINE HYDROCHLORIDE) [Suspect]
     Indication: SLEEP DISORDER
     Dosage: 3 DOSES, ORAL
     Route: 048
     Dates: start: 20050127
  3. CARBAMAZEPINE [Concomitant]

REACTIONS (4)
  - CONVULSION [None]
  - PALPITATIONS [None]
  - REACTION TO COLOURING [None]
  - VOMITING [None]
